FAERS Safety Report 8876865 (Version 1)
Quarter: 2012Q4

REPORT INFORMATION
  Report Type: 
  Country: US (occurrence: US)
  Receive Date: 20121023
  Receipt Date: 20121023
  Transmission Date: 20130627
  Serious: No
  Sender: FDA-Public Use
  Company Number: US-AMGEN-USASP2012053704

PATIENT
  Sex: Male

DRUGS (4)
  1. ENBREL [Suspect]
     Indication: PRODUCT USED FOR UNKNOWN INDICATION
     Dosage: 25 mg, 2 times/wk
     Route: 058
  2. ARAVA [Concomitant]
     Dosage: 10 mg, UNK
  3. LISINOPRIL [Concomitant]
     Dosage: 40 mg, UNK
  4. CALCIUM [Concomitant]
     Dosage: 500 UNK, UNK

REACTIONS (3)
  - Blood glucose increased [Unknown]
  - Cough [Unknown]
  - Upper respiratory tract congestion [Unknown]
